FAERS Safety Report 7380405-X (Version None)
Quarter: 2011Q1

REPORT INFORMATION
  Report Type: 
  Country: None (occurrence: None)
  Receive Date: 20110318
  Receipt Date: 20110309
  Transmission Date: 20110831
  Serious: Yes (Other)
  Sender: FDA-Public Use
  Company Number: 029040

PATIENT

DRUGS (1)
  1. VIMPAT [Suspect]

REACTIONS (2)
  - OFF LABEL USE [None]
  - ATRIOVENTRICULAR BLOCK [None]
